FAERS Safety Report 9031046 (Version 2)
Quarter: 2013Q1

REPORT INFORMATION
  Report Type: Spontaneous
  Country: US (occurrence: US)
  Receive Date: 20130123
  Receipt Date: 20130314
  Transmission Date: 20140127
  Serious: Yes (Hospitalization, Other)
  Sender: FDA-Public Use
  Company Number: US-PFIZER INC-2013028436

PATIENT
  Age: 88 Year
  Sex: Female
  Weight: 56.69 kg

DRUGS (5)
  1. LIPITOR [Suspect]
     Indication: BLOOD CHOLESTEROL INCREASED
     Dosage: 10 MG, DAILY
     Dates: start: 201201
  2. LIPITOR [Suspect]
     Dosage: UNK
  3. AMARYL [Concomitant]
     Indication: BLOOD GLUCOSE ABNORMAL
     Dosage: 1 MG, DAILY
  4. COZAAR [Concomitant]
     Indication: BLOOD PRESSURE ABNORMAL
     Dosage: 50 MG, DAILY
  5. ARICEPT [Concomitant]
     Dosage: UNK

REACTIONS (3)
  - Ovarian cancer [Unknown]
  - Ovarian cancer [Unknown]
  - Expired drug administered [Unknown]
